FAERS Safety Report 6962550-3 (Version None)
Quarter: 2010Q3

REPORT INFORMATION
  Report Type: 
  Country: None (occurrence: None)
  Receive Date: 20100831
  Receipt Date: 20100824
  Transmission Date: 20110219
  Serious: Yes (Other)
  Sender: FDA-Public Use
  Company Number: 1000015905

PATIENT
  Age: 58 Year
  Sex: Female

DRUGS (8)
  1. SAVELLA [Suspect]
     Indication: FIBROMYALGIA
     Dosage: 12.5 MG 912.4 MG,1 IN 1 D), ORAL; 25 MG (12.5 MG,2 IN 1 D), ORAL; 50 MG (25 MG,2 IN 1), ORAL
     Route: 048
     Dates: start: 20100727, end: 20100727
  2. SAVELLA [Suspect]
     Indication: FIBROMYALGIA
     Dosage: 12.5 MG 912.4 MG,1 IN 1 D), ORAL; 25 MG (12.5 MG,2 IN 1 D), ORAL; 50 MG (25 MG,2 IN 1), ORAL
     Route: 048
     Dates: start: 20100728, end: 20100729
  3. SAVELLA [Suspect]
     Indication: FIBROMYALGIA
     Dosage: 12.5 MG 912.4 MG,1 IN 1 D), ORAL; 25 MG (12.5 MG,2 IN 1 D), ORAL; 50 MG (25 MG,2 IN 1), ORAL
     Route: 048
     Dates: start: 20100730, end: 20100802
  4. SAVELLA [Suspect]
     Indication: FIBROMYALGIA
     Dosage: 100 MG (50 MG,2 IN 1 D), ORAL
     Route: 048
     Dates: start: 20100803, end: 20100816
  5. ZOLAZEPAM [Concomitant]
  6. DEXAMETHASONE [Concomitant]
  7. LOVASTATIN [Concomitant]
  8. SYNTHROID [Concomitant]

REACTIONS (3)
  - DISORIENTATION [None]
  - IMPAIRED DRIVING ABILITY [None]
  - ROAD TRAFFIC ACCIDENT [None]
